FAERS Safety Report 8558904-4 (Version None)
Quarter: 2012Q3

REPORT INFORMATION
  Report Type: 
  Country: None (occurrence: None)
  Receive Date: 20120801
  Receipt Date: 20120723
  Transmission Date: 20120928
  Serious: Yes (Hospitalization, Disabling, Other)
  Sender: FDA-Public Use
  Company Number: US-009507513-1207USA009900

PATIENT

DRUGS (7)
  1. ATENOLOL [Concomitant]
  2. BENDROFLUMETHIAZIDE [Concomitant]
  3. ALLOPURINOL [Concomitant]
  4. ZOCOR [Suspect]
     Dosage: 40 MG, UNK
     Route: 048
  5. CYPROTERONE ACETATE [Suspect]
     Dosage: 100 MG, TID
     Route: 048
  6. PROSTEP [Concomitant]
  7. ASPIRIN [Concomitant]

REACTIONS (8)
  - MUSCULAR WEAKNESS [None]
  - FATIGUE [None]
  - RHABDOMYOLYSIS [None]
  - MOBILITY DECREASED [None]
  - PROSTATE CANCER [None]
  - PARAESTHESIA [None]
  - DYSPNOEA [None]
  - DRUG INTERACTION [None]
